FAERS Safety Report 18316355 (Version 2)
Quarter: 2020Q4

REPORT INFORMATION
  Report Type: Spontaneous
  Country: US (occurrence: US)
  Receive Date: 20200927
  Receipt Date: 20201009
  Transmission Date: 20210113
  Serious: Yes (Hospitalization)
  Sender: FDA-Public Use
  Company Number: US-MALLINCKRODT-T202004699

PATIENT
  Age: 74 Year
  Sex: Male
  Weight: 77 kg

DRUGS (1)
  1. H.P. ACTHAR [Suspect]
     Active Substance: CORTICOTROPIN
     Indication: MULTIPLE SCLEROSIS
     Dosage: 100 UNITS / 1.25 MILLILITER, QD FOR 7 DAYS
     Route: 058

REACTIONS (2)
  - Embolism [Unknown]
  - Myocardial infarction [Unknown]

NARRATIVE: CASE EVENT DATE: 202009
